FAERS Safety Report 15701554 (Version 2)
Quarter: 2019Q1

REPORT INFORMATION
  Report Type: Spontaneous
  Country: IT (occurrence: IT)
  Receive Date: 20181208
  Receipt Date: 20190227
  Transmission Date: 20190417
  Serious: Yes (Death)
  Sender: FDA-Public Use
  Company Number: IT-ROCHE-2226491

PATIENT
  Age: 80 Year
  Sex: Male
  Weight: 80 kg

DRUGS (2)
  1. RITUXIMAB. [Suspect]
     Active Substance: RITUXIMAB
     Indication: NEPHROTIC SYNDROME
     Dosage: MOST RECENT DOSE ON 24/JUL/2018.
     Route: 042
     Dates: start: 20180724, end: 20180724
  2. MAVIRET [Concomitant]
     Active Substance: GLECAPREVIR\PIBRENTASVIR
     Indication: HEPATITIS
     Dosage: STRENGTH: 100 MG/40 MG.
     Route: 065
     Dates: start: 20180706, end: 20180912

REACTIONS (6)
  - Bronchopulmonary aspergillosis [Fatal]
  - Gravitational oedema [Fatal]
  - Dyspnoea [Fatal]
  - Productive cough [Fatal]
  - Ascites [Fatal]
  - Hepatic failure [Fatal]

NARRATIVE: CASE EVENT DATE: 20180912
